FAERS Safety Report 25368085 (Version 1)
Quarter: 2025Q2

REPORT INFORMATION
  Report Type: Spontaneous
  Country: US (occurrence: US)
  Receive Date: 20250528
  Receipt Date: 20250528
  Transmission Date: 20250717
  Serious: No
  Sender: NOVARTIS
  Company Number: US-002147023-NVSC2025US084609

PATIENT
  Sex: Female

DRUGS (2)
  1. MEKINIST [Suspect]
     Active Substance: TRAMETINIB DIMETHYL SULFOXIDE
     Indication: Neuroendocrine carcinoma of the skin
     Dosage: 1 MG, QD
     Route: 048
     Dates: start: 202503
  2. TAFINLAR [Suspect]
     Active Substance: DABRAFENIB MESYLATE
     Indication: Neuroendocrine carcinoma of the skin
     Dosage: 50 MG, BID
     Route: 048
     Dates: start: 202503

REACTIONS (1)
  - Drug ineffective [Unknown]
